FAERS Safety Report 21550384 (Version 1)
Quarter: 2022Q4

REPORT INFORMATION
  Report Type: Report from Study
  Country: US (occurrence: US)
  Receive Date: 20221103
  Receipt Date: 20221103
  Transmission Date: 20230113
  Serious: No
  Sender: FDA-Public Use
  Company Number: US-ABBVIE-4174426

PATIENT
  Sex: Male

DRUGS (3)
  1. IMBRUVICA [Suspect]
     Active Substance: IBRUTINIB
     Indication: Chronic lymphocytic leukaemia
     Route: 048
  2. Covid-19 vaccine Pfizer/BioNTech [Concomitant]
     Indication: COVID-19 immunisation
     Dosage: 1ST DOSE
     Dates: start: 20210720, end: 20210720
  3. Covid-19 vaccine Pfizer/BioNTech [Concomitant]
     Indication: COVID-19 immunisation
     Dosage: 2ND DOSE
     Dates: start: 20210901, end: 20210901

REACTIONS (10)
  - Subcutaneous abscess [Recovering/Resolving]
  - Back injury [Recovered/Resolved]
  - Dysphonia [Recovering/Resolving]
  - Headache [Recovering/Resolving]
  - Pain [Recovering/Resolving]
  - Tooth extraction [Recovering/Resolving]
  - Urinary tract infection [Recovered/Resolved]
  - Diarrhoea [Recovering/Resolving]
  - Food allergy [Recovered/Resolved]
  - Pyrexia [Recovering/Resolving]
